FAERS Safety Report 14377085 (Version 1)
Quarter: 2018Q1

REPORT INFORMATION
  Report Type: Spontaneous
  Country: US (occurrence: US)
  Receive Date: 20180111
  Receipt Date: 20180111
  Transmission Date: 20180509
  Serious: No
  Sender: FDA-Public Use
  Company Number: US-DRREDDYS-USA/USA/17/0087927

PATIENT
  Age: 65 Year
  Sex: Male
  Weight: 102.05 kg

DRUGS (1)
  1. NICOTINE. [Suspect]
     Active Substance: NICOTINE
     Indication: SMOKING CESSATION THERAPY
     Dosage: ABOUT TWO WEEKS AGO
     Route: 061

REACTIONS (2)
  - Incorrect drug administration duration [Unknown]
  - Initial insomnia [Recovered/Resolved]
